FAERS Safety Report 17975618 (Version 1)
Quarter: 2020Q3

REPORT INFORMATION
  Report Type: Report from Study
  Country: US (occurrence: US)
  Receive Date: 20200702
  Receipt Date: 20200702
  Transmission Date: 20201103
  Serious: Yes (Hospitalization)
  Sender: FDA-Public Use
  Company Number: US-ACTELION-A-NJ2020-206686

PATIENT
  Age: 68 Year
  Sex: Female
  Weight: 102.04 kg

DRUGS (2)
  1. ELIQUIS [Concomitant]
     Active Substance: APIXABAN
  2. OPSUMIT [Suspect]
     Active Substance: MACITENTAN
     Indication: PULMONARY ARTERIAL HYPERTENSION
     Dosage: 10 MG, QD
     Route: 048

REACTIONS (4)
  - Atrial flutter [Unknown]
  - Cardioversion [Unknown]
  - Sleep apnoea syndrome [Unknown]
  - Arrhythmia [Unknown]

NARRATIVE: CASE EVENT DATE: 20200528
